FAERS Safety Report 4968316-8 (Version None)
Quarter: 2006Q1

REPORT INFORMATION
  Report Type: 
  Country: None (occurrence: None)
  Receive Date: 20060201
  Receipt Date: 20051229
  Transmission Date: 20060701
  Serious: No
  Sender: FDA-Public Use
  Company Number: 2005PV006376

PATIENT
  Age: 50 Year
  Sex: Female
  Weight: 99.7913 kg

DRUGS (11)
  1. BYETTA [Suspect]
     Indication: DIABETES MELLITUS NON-INSULIN-DEPENDENT
     Dosage: 5 MCG;BID;SC
     Route: 058
     Dates: start: 20051127
  2. ZYRTEC [Concomitant]
  3. SINGULAIR [Concomitant]
  4. ADVAIR DISKUS 100/50 [Concomitant]
  5. GLUCOPHAGE XR [Concomitant]
  6. ACTOS [Concomitant]
  7. GLYSET [Concomitant]
  8. XENICAL [Concomitant]
  9. TRICOR [Concomitant]
  10. AVALIDE [Concomitant]
  11. AMARYL [Concomitant]

REACTIONS (5)
  - CONDITION AGGRAVATED [None]
  - INJECTION SITE REACTION [None]
  - NASAL CONGESTION [None]
  - NASOPHARYNGITIS [None]
  - PRURITUS [None]
